FAERS Safety Report 16567912 (Version 1)
Quarter: 2019Q3

REPORT INFORMATION
  Report Type: Spontaneous
  Country: US (occurrence: US)
  Receive Date: 20190712
  Receipt Date: 20190712
  Transmission Date: 20191004
  Serious: Yes (Other)
  Sender: FDA-Public Use
  Company Number: US-BAYER-2019-127080

PATIENT
  Age: 45 Year
  Sex: Female

DRUGS (2)
  1. SORAFENIB (RAF KINASE INHIBITOR) [Suspect]
     Active Substance: SORAFENIB
     Indication: METASTASIS
  2. SORAFENIB (RAF KINASE INHIBITOR) [Suspect]
     Active Substance: SORAFENIB
     Indication: ADRENAL GLAND CANCER METASTATIC
     Dosage: 400 MG, BID

REACTIONS (12)
  - Vomiting [None]
  - Rash generalised [None]
  - Rash morbilliform [None]
  - Rash macular [None]
  - Toxicity to various agents [None]
  - Swelling face [None]
  - Pyrexia [None]
  - Purpura [None]
  - Transaminases increased [None]
  - Diarrhoea [None]
  - Off label use [None]
  - Product use in unapproved indication [None]
